FAERS Safety Report 23070417 (Version 19)
Quarter: 2024Q3

REPORT INFORMATION
  Report Type: Spontaneous
  Country: IN (occurrence: IN)
  Receive Date: 20231016
  Receipt Date: 20240920
  Transmission Date: 20241016
  Serious: Yes (Hospitalization, Other)
  Sender: PFIZER
  Company Number: IN-PFIZER INC-PV202300165926

PATIENT
  Age: 50 Year
  Sex: Female

DRUGS (6)
  1. LORLATINIB [Suspect]
     Active Substance: LORLATINIB
     Indication: Lung adenocarcinoma
     Dosage: 100 MG, 1X/DAY
     Route: 048
     Dates: start: 20230708
  2. LORLATINIB [Suspect]
     Active Substance: LORLATINIB
     Dosage: 100 MG
     Route: 048
     Dates: start: 20230714
  3. LORLATINIB [Suspect]
     Active Substance: LORLATINIB
     Dosage: 100 MG, 1X/DAY
     Route: 048
     Dates: start: 20230905
  4. PANTOPRAZOLE SODIUM [Concomitant]
     Active Substance: PANTOPRAZOLE SODIUM
     Dosage: UNK
  5. LEVETIRACETAM [Concomitant]
     Active Substance: LEVETIRACETAM
     Dosage: UNK
  6. LIVOPILL [Concomitant]
     Dosage: 500 MG, 2X/DAY

REACTIONS (74)
  - Deafness [Recovered/Resolved]
  - Hyperthyroidism [Not Recovered/Not Resolved]
  - Malaise [Unknown]
  - Cholelithiasis [Unknown]
  - Asthenia [Unknown]
  - Balance disorder [Unknown]
  - Peripheral swelling [Recovering/Resolving]
  - Constipation [Not Recovered/Not Resolved]
  - Decreased appetite [Recovering/Resolving]
  - Weight fluctuation [Not Recovered/Not Resolved]
  - Rash [Unknown]
  - Nephrolithiasis [Recovering/Resolving]
  - Sleep disorder [Not Recovered/Not Resolved]
  - Hypothyroidism [Not Recovered/Not Resolved]
  - Fatigue [Unknown]
  - Coordination abnormal [Unknown]
  - Fear [Unknown]
  - Tension [Unknown]
  - Anxiety [Unknown]
  - Hunger [Not Recovered/Not Resolved]
  - Paraesthesia [Not Recovered/Not Resolved]
  - Dyspnoea exertional [Not Recovered/Not Resolved]
  - Cough [Not Recovered/Not Resolved]
  - Hyperaesthesia teeth [Not Recovered/Not Resolved]
  - Ear infection [Not Recovered/Not Resolved]
  - Lacrimation increased [Not Recovered/Not Resolved]
  - Dysarthria [Recovering/Resolving]
  - Memory impairment [Not Recovered/Not Resolved]
  - Blood cholesterol increased [Not Recovered/Not Resolved]
  - Blood triglycerides increased [Not Recovered/Not Resolved]
  - Swelling face [Unknown]
  - Psychiatric symptom [Unknown]
  - Hair growth abnormal [Unknown]
  - Alopecia [Unknown]
  - Nervousness [Unknown]
  - Tooth fracture [Unknown]
  - Acrophobia [Unknown]
  - Increased appetite [Unknown]
  - Abdominal discomfort [Not Recovered/Not Resolved]
  - Skin wrinkling [Not Recovered/Not Resolved]
  - Dental plaque [Recovering/Resolving]
  - Sneezing [Not Recovered/Not Resolved]
  - Respiration abnormal [Unknown]
  - Back pain [Not Recovered/Not Resolved]
  - Arthralgia [Recovering/Resolving]
  - Musculoskeletal stiffness [Not Recovered/Not Resolved]
  - Swelling [Not Recovered/Not Resolved]
  - Gastric infection [Unknown]
  - Fat tissue increased [Unknown]
  - Skin disorder [Not Recovered/Not Resolved]
  - Emotional disorder [Unknown]
  - Nasopharyngitis [Not Recovered/Not Resolved]
  - Anger [Unknown]
  - Irritability [Unknown]
  - Abnormal behaviour [Unknown]
  - Lethargy [Unknown]
  - Oedema peripheral [Unknown]
  - Gait disturbance [Unknown]
  - Neoplasm progression [Unknown]
  - Depressed mood [Not Recovered/Not Resolved]
  - Tachyphrenia [Not Recovered/Not Resolved]
  - Headache [Not Recovered/Not Resolved]
  - Neck pain [Not Recovered/Not Resolved]
  - Hypoaesthesia [Recovered/Resolved]
  - Muscle strain [Not Recovered/Not Resolved]
  - Hyperchlorhydria [Recovered/Resolved]
  - Temperature intolerance [Not Recovered/Not Resolved]
  - Arthritis [Not Recovered/Not Resolved]
  - Haemoglobin decreased [Not Recovered/Not Resolved]
  - Pruritus [Recovering/Resolving]
  - Frustration tolerance decreased [Not Recovered/Not Resolved]
  - Appetite disorder [Recovering/Resolving]
  - Hypersensitivity [Unknown]
  - Product dose omission issue [Unknown]

NARRATIVE: CASE EVENT DATE: 20240320
